FAERS Safety Report 13575469 (Version 1)
Quarter: 2017Q2

REPORT INFORMATION
  Report Type: Spontaneous
  Country: US (occurrence: US)
  Receive Date: 20170524
  Receipt Date: 20170524
  Transmission Date: 20170830
  Serious: Yes (Life-Threatening, Other)
  Sender: FDA-Public Use
  Company Number: US-MACLEODS PHARMACEUTICALS US LTD-MAC2017005012

PATIENT

DRUGS (14)
  1. FLUOXETINE [Interacting]
     Active Substance: FLUOXETINE HYDROCHLORIDE
     Indication: DEPRESSION
  2. GABAPENTIN. [Interacting]
     Active Substance: GABAPENTIN
     Indication: ANXIETY
     Dosage: 300 MG, TID
     Route: 065
  3. PROPRANOLOL ER [Concomitant]
     Indication: ANXIETY
     Dosage: 60 MG, QD (EXTENDED RELEASE)
     Route: 065
  4. GABAPENTIN. [Interacting]
     Active Substance: GABAPENTIN
     Indication: IRRITABILITY
  5. PRAZOSIN. [Concomitant]
     Active Substance: PRAZOSIN
     Dosage: 2 MG, QD
     Route: 065
  6. TRAMADOL. [Suspect]
     Active Substance: TRAMADOL
     Indication: ARTHRALGIA
     Dosage: 400 MG, QD
     Route: 065
  7. PRAZOSIN. [Concomitant]
     Active Substance: PRAZOSIN
     Indication: NIGHTMARE
     Dosage: 4 MG, QD
     Route: 065
  8. TRAMADOL. [Interacting]
     Active Substance: TRAMADOL
     Indication: SEDATIVE THERAPY
  9. FLUOXETINE [Interacting]
     Active Substance: FLUOXETINE HYDROCHLORIDE
     Indication: POST-TRAUMATIC STRESS DISORDER
     Dosage: 60 MG, QD
     Route: 065
  10. ZOLPIDEM [Interacting]
     Active Substance: ZOLPIDEM\ZOLPIDEM TARTRATE
     Indication: INSOMNIA
     Dosage: 10 MG, QD NIGHTLY REGIMEN
     Route: 065
  11. HYDROXYZINE [Interacting]
     Active Substance: HYDROXYZINE HYDROCHLORIDE
     Indication: SEDATIVE THERAPY
     Dosage: 20 MG, QD (NIGHTLY REGIMEN)
     Route: 065
  12. GABAPENTIN. [Interacting]
     Active Substance: GABAPENTIN
     Indication: SEDATIVE THERAPY
  13. MELATONIN [Interacting]
     Active Substance: MELATONIN
     Indication: SEDATIVE THERAPY
     Dosage: 6 MG, QD (NIGHTLY REGIMEN)
     Route: 065
  14. PROPRANOLOL ER [Concomitant]
     Dosage: 10 MG, AS NEEDED

REACTIONS (7)
  - Suicidal behaviour [Recovered/Resolved]
  - Amnesia [Recovered/Resolved]
  - Confusional state [Recovered/Resolved]
  - Drug interaction [Recovered/Resolved]
  - Abnormal sleep-related event [Recovered/Resolved]
  - Injury [Recovered/Resolved]
  - Parasomnia [Recovered/Resolved]
